FAERS Safety Report 8927936 (Version 1)
Quarter: 2012Q4

REPORT INFORMATION
  Report Type: Spontaneous
  Country: US (occurrence: None)
  Receive Date: 20121126
  Receipt Date: 20121126
  Transmission Date: 20130627
  Serious: Yes (Other)
  Sender: FDA-Public Use
  Company Number: None

PATIENT
  Age: 39 Year
  Sex: Male
  Weight: 68.95 kg

DRUGS (1)
  1. FORTESTA [Suspect]
     Indication: HYPOGONADISM
     Dosage: 4 pumps-40 mg daily cutaneous
     Route: 003
     Dates: start: 20120818, end: 20121121

REACTIONS (1)
  - Dermatitis contact [None]
